FAERS Safety Report 4749742-9 (Version None)
Quarter: 2005Q3

REPORT INFORMATION
  Report Type: 
  Country: None (occurrence: None)
  Receive Date: 20050822
  Receipt Date: 20050809
  Transmission Date: 20060218
  Serious: Yes (Hospitalization)
  Sender: FDA-Public Use
  Company Number: 200512502EU

PATIENT
  Age: 79 Year
  Sex: Female
  Weight: 38 kg

DRUGS (3)
  1. NATRILIX - SLOW RELEASE [Suspect]
     Route: 048
     Dates: end: 20050523
  2. MIRTAZAPINE [Suspect]
     Route: 048
  3. UNKNOWN DRUG [Concomitant]

REACTIONS (6)
  - BLOOD OSMOLARITY DECREASED [None]
  - CONFUSIONAL STATE [None]
  - ELECTROLYTE IMBALANCE [None]
  - FALL [None]
  - HYPOKALAEMIA [None]
  - HYPONATRAEMIA [None]
